FAERS Safety Report 9007399 (Version 8)
Quarter: 2014Q2

REPORT INFORMATION
  Report Type: Spontaneous
  Country: US (occurrence: US)
  Receive Date: 20130110
  Receipt Date: 20140605
  Transmission Date: 20141212
  Serious: Yes (Life-Threatening, Hospitalization, Other)
  Sender: FDA-Public Use
  Company Number: US-MERCK-1301USA004607

PATIENT
  Sex: Male
  Weight: 79.37 kg

DRUGS (6)
  1. JANUMET [Suspect]
     Indication: TYPE 2 DIABETES MELLITUS
     Dosage: 50-1000MG, BID
     Route: 048
     Dates: start: 20070824, end: 20100213
  2. HUMALOG [Concomitant]
     Indication: TYPE 2 DIABETES MELLITUS
     Dosage: 8 IU AC
     Route: 058
  3. LANTUS [Concomitant]
     Indication: TYPE 2 DIABETES MELLITUS
  4. METFORMIN [Concomitant]
     Indication: TYPE 2 DIABETES MELLITUS
  5. ACTOS [Concomitant]
     Indication: TYPE 2 DIABETES MELLITUS
     Dosage: 30 MG, QD
     Route: 048
  6. AVANDIA [Concomitant]
     Indication: TYPE 2 DIABETES MELLITUS

REACTIONS (43)
  - Pancreatic carcinoma [Unknown]
  - Pancreaticoduodenectomy [Unknown]
  - Jaundice cholestatic [Unknown]
  - Myocardial infarction [Unknown]
  - Tumour invasion [Unknown]
  - Metastases to lymph nodes [Unknown]
  - Radiotherapy to pancreas [Unknown]
  - Pancreatitis [Unknown]
  - Pancreatic cyst [Unknown]
  - Ulcer [Unknown]
  - Gastrooesophageal reflux disease [Unknown]
  - Hypercholesterolaemia [Unknown]
  - Arteriosclerosis coronary artery [Unknown]
  - Coronary artery disease [Unknown]
  - Fall [Unknown]
  - Bile duct stent insertion [Unknown]
  - Drug administration error [Unknown]
  - Pyrexia [Unknown]
  - Haematocrit decreased [Recovered/Resolved]
  - Gastric haemorrhage [Unknown]
  - Transfusion [Unknown]
  - Gastric disorder [Unknown]
  - Reflux gastritis [Unknown]
  - Anastomotic ulcer [Unknown]
  - Pancreatic mass [Unknown]
  - Gastric disorder [Unknown]
  - Osteoarthritis [Unknown]
  - Atelectasis [Unknown]
  - Pneumobilia [Unknown]
  - Biliary dilatation [Unknown]
  - Renal cyst [Unknown]
  - Spinal osteoarthritis [Unknown]
  - Aortic aneurysm [Unknown]
  - Hepatic steatosis [Unknown]
  - Aortic dilatation [Unknown]
  - Hyperadrenalism [Unknown]
  - Renal cyst [Unknown]
  - Bile duct stenosis [Unknown]
  - Stent placement [Unknown]
  - Depressed mood [Unknown]
  - Diarrhoea [Unknown]
  - Rash [Recovered/Resolved]
  - Nausea [Unknown]
